FAERS Safety Report 9351155 (Version 3)
Quarter: 2013Q3

REPORT INFORMATION
  Report Type: Report from Study
  Country: DE (occurrence: DE)
  Receive Date: 20130617
  Receipt Date: 20130830
  Transmission Date: 20140515
  Serious: Yes (Hospitalization)
  Sender: FDA-Public Use
  Company Number: DE-ROCHE-1227107

PATIENT
  Age: 54 Year
  Sex: Female
  Weight: 58 kg

DRUGS (12)
  1. PERTUZUMAB [Suspect]
     Indication: BREAST CANCER
     Dosage: LAST DOSE PRIOR TO VOMITTING 15/MAY/2013, LAST DOSE PRIOR TO EXCORISIS: 05/JUN/2013
     Route: 042
     Dates: start: 20130220
  2. PERTUZUMAB [Suspect]
     Dosage: LAST DOSE BEFORE EXSICCOSIS ON 05/JUN/2013.  LAST DOSE PRIOR TO NAUSEA 26/JUN/2013
     Route: 042
  3. TRASTUZUMAB [Suspect]
     Indication: BREAST CANCER
     Dosage: LAST DOSE PRIOR TO VOMITING 15/MAY/2013, LAST DOSE PRIOR TO EXSICCOSIS 05/JUN/2013, LAST DOSE PRIOR
     Route: 042
     Dates: start: 20130220
  4. TRASTUZUMAB [Suspect]
     Dosage: LAST DOSE PRIOR TO EXSICCOSIS 05/JUN/2013  LAST DOSE PRIOR TO NAUSEA 26/JUN/2013
     Route: 042
     Dates: start: 20130220
  5. EPIRUBICIN [Suspect]
     Indication: BREAST CANCER
     Dosage: LAST DOSE PRIOR TO SAE 5/MAY/2013
     Route: 042
     Dates: start: 20130515
  6. EPIRUBICIN [Suspect]
     Dosage: LAST DOSE PRIOR TO EXSICCOSIS 05/JUN/2013
     Route: 042
     Dates: start: 20130515
  7. EPIRUBICIN [Suspect]
     Dosage: LAST DOSE PRIOR TO NAUSEA  26/JUN/2013
     Route: 042
  8. CYCLOPHOSPHAMIDE [Suspect]
     Indication: BREAST CANCER
     Dosage: LAST DOSE PRIOR TO VOMITING15/MAY/2013,
     Route: 042
     Dates: start: 20130515
  9. CYCLOPHOSPHAMIDE [Suspect]
     Dosage: LAST DOSE PRIOR TO NAUSEA AND EXSICCOSIS ON 05/JUN/2013.
     Route: 042
     Dates: start: 20130515
  10. PACLITAXEL [Suspect]
     Indication: BREAST CANCER
     Dosage: LAST DOSE PRIOR TO EXSICCOSIS AND NAUSEA 08/MAY/2013?DOSAGE FORM: 80MG/M2
     Route: 042
     Dates: start: 20130220
  11. SIMVASTATIN [Concomitant]
     Route: 065
     Dates: start: 2007, end: 20130610
  12. LYRICA [Concomitant]
     Route: 065
     Dates: start: 20130521

REACTIONS (3)
  - Dehydration [Recovered/Resolved]
  - Vomiting [Recovered/Resolved]
  - Nausea [Recovered/Resolved]
